FAERS Safety Report 24211711 (Version 3)
Quarter: 2024Q3

REPORT INFORMATION
  Report Type: Spontaneous
  Country: US (occurrence: US)
  Receive Date: 20240814
  Receipt Date: 20240912
  Transmission Date: 20241017
  Serious: Yes (Other)
  Sender: BRISTOL MYERS SQUIBB
  Company Number: US-BRISTOL-MYERS SQUIBB COMPANY-2024-125809

PATIENT
  Age: 81 Year
  Sex: Male

DRUGS (1)
  1. SPRYCEL [Suspect]
     Active Substance: DASATINIB
     Indication: Chronic myeloid leukaemia
     Route: 048

REACTIONS (8)
  - Rash [Recovered/Resolved]
  - Splenomegaly [Unknown]
  - Cardiac failure [Unknown]
  - Illness [Unknown]
  - Platelet count decreased [Unknown]
  - Full blood count decreased [Unknown]
  - Fatigue [Unknown]
  - Insomnia [Unknown]
